FAERS Safety Report 22053607 (Version 1)
Quarter: 2023Q1

REPORT INFORMATION
  Report Type: Spontaneous
  Country: US (occurrence: US)
  Receive Date: 20230302
  Receipt Date: 20230302
  Transmission Date: 20230418
  Serious: No
  Sender: FDA-Public Use
  Company Number: US-BAYER-2023A024040

PATIENT
  Age: 15 Year
  Sex: Female
  Weight: 57.15 kg

DRUGS (5)
  1. MIRALAX [Suspect]
     Active Substance: POLYETHYLENE GLYCOL 3350
     Indication: Constipation
  2. MILK OF MAGNESIA ORIGINAL [Suspect]
     Active Substance: MAGNESIUM HYDROXIDE
  3. LINZESS [Concomitant]
     Active Substance: LINACLOTIDE
     Indication: Constipation
     Dosage: CAPSULE
     Route: 048
     Dates: start: 202211, end: 20230106
  4. VITAMINS [Concomitant]
     Active Substance: VITAMINS
  5. PROBIOTICS [BIFIDOBACTERIUM LONGUM;LACTOBACILLUS ACIDOPHILUS;LACTO [Concomitant]

REACTIONS (6)
  - Abdominal distension [None]
  - Chest pain [None]
  - Constipation [None]
  - Drug ineffective [None]
  - Heart rate increased [None]
  - Nausea [None]
